FAERS Safety Report 4575043-8 (Version None)
Quarter: 2005Q1

REPORT INFORMATION
  Report Type: 
  Country: None (occurrence: None)
  Receive Date: 20050208
  Receipt Date: 20050128
  Transmission Date: 20050727
  Serious: Yes (Death)
  Sender: FDA-Public Use
  Company Number: PH-JNJFOC-20050106961

PATIENT
  Age: 24 Year
  Sex: Female

DRUGS (2)
  1. DOLCET [Suspect]
     Indication: MIGRAINE
     Dosage: 1 TABLET = 25MG (COMPOSITION OF 25MG TABLET - TRAMADOL HCL 37.5 MG + APAP 325 MG)
     Route: 049
  2. KETOROLAC [Concomitant]
     Indication: MIGRAINE
     Route: 030

REACTIONS (1)
  - DEATH [None]
